FAERS Safety Report 14473035 (Version 2)
Quarter: 2024Q2

REPORT INFORMATION
  Report Type: Spontaneous
  Country: CA (occurrence: CA)
  Receive Date: 20180201
  Receipt Date: 20240421
  Transmission Date: 20240716
  Serious: Yes (Hospitalization)
  Sender: FDA-Public Use
  Company Number: CA-009507513-1801CAN014618

PATIENT
  Age: 75 Year
  Sex: Male
  Weight: 122.45 kg

DRUGS (1)
  1. JANUMET [Suspect]
     Active Substance: METFORMIN HYDROCHLORIDE\SITAGLIPTIN PHOSPHATE
     Indication: Diabetes mellitus
     Dosage: UNK DOSE, TWICE A DAY (2 EVERY 1 DAY)
     Route: 048
     Dates: start: 20170112, end: 20170521

REACTIONS (3)
  - Fatigue [Recovered/Resolved]
  - Amnesia [Recovered/Resolved]
  - Confusional state [Recovered/Resolved]

NARRATIVE: CASE EVENT DATE: 20170201
